FAERS Safety Report 13736722 (Version 1)
Quarter: 2017Q3

REPORT INFORMATION
  Report Type: Spontaneous
  Country: US (occurrence: US)
  Receive Date: 20170708
  Receipt Date: 20170708
  Transmission Date: 20171127
  Serious: No
  Sender: FDA-Public Use
  Company Number: None

PATIENT
  Age: 69 Year
  Sex: Female
  Weight: 90.72 kg

DRUGS (16)
  1. CARVEDILOL. [Concomitant]
     Active Substance: CARVEDILOL
  2. LATEX [Concomitant]
     Active Substance: NATURAL LATEX RUBBER
  3. GLIPIZIDE. [Concomitant]
     Active Substance: GLIPIZIDE
  4. LOSARTAN POTASSIUM-HCTZ [Suspect]
     Active Substance: HYDROCHLOROTHIAZIDE\LOSARTAN POTASSIUM
  5. VITAMIN D [Concomitant]
     Active Substance: CHOLECALCIFEROL
  6. DEXILANT [Concomitant]
     Active Substance: DEXLANSOPRAZOLE
  7. VITAMINS W/IRON [Concomitant]
  8. ATORVASTATIN WITH CALCIUM [Concomitant]
  9. METFORMIN [Concomitant]
     Active Substance: METFORMIN HYDROCHLORIDE
  10. LOSARTAN 100 HCTZ 25 [Suspect]
     Active Substance: HYDROCHLOROTHIAZIDE\LOSARTAN POTASSIUM
     Indication: BLOOD PRESSURE MEASUREMENT
     Dosage: DOSE - FREQUENCY - 1 A DAY - 1 IN MORNING
     Route: 048
     Dates: start: 2011, end: 20140224
  11. CALCIUM [Concomitant]
     Active Substance: CALCIUM
  12. MORPHINE SULFATE. [Concomitant]
     Active Substance: MORPHINE SULFATE
  13. LEVOTHYROXINE. [Concomitant]
     Active Substance: LEVOTHYROXINE
  14. DIAZEPAM. [Concomitant]
     Active Substance: DIAZEPAM
  15. AMLODIPINE [Concomitant]
     Active Substance: AMLODIPINE BESYLATE
  16. MIRALAX [Concomitant]
     Active Substance: POLYETHYLENE GLYCOL 3350

REACTIONS (5)
  - Fall [None]
  - Unevaluable event [None]
  - Pharyngeal oedema [None]
  - Presyncope [None]
  - Cystitis [None]

NARRATIVE: CASE EVENT DATE: 2011
